FAERS Safety Report 19177046 (Version 8)
Quarter: 2022Q2

REPORT INFORMATION
  Report Type: Report from Study
  Country: IE (occurrence: IE)
  Receive Date: 20210424
  Receipt Date: 20220418
  Transmission Date: 20220721
  Serious: Yes (Other)
  Sender: FDA-Public Use
  Company Number: NVSC2021IE084924

PATIENT
  Sex: Male

DRUGS (2)
  1. AFINITOR [Suspect]
     Active Substance: EVEROLIMUS
     Indication: Neuroendocrine tumour
     Dosage: 7.5 MG
     Route: 065
     Dates: start: 20210325
  2. CREON [Concomitant]
     Active Substance: PANCRELIPASE AMYLASE\PANCRELIPASE LIPASE\PANCRELIPASE PROTEASE
     Indication: Pancreatic failure
     Dosage: UNK
     Route: 048

REACTIONS (8)
  - Skin disorder [Unknown]
  - Diarrhoea [Unknown]
  - Herpes zoster [Recovering/Resolving]
  - Fatigue [Unknown]
  - Limb discomfort [Unknown]
  - COVID-19 [Recovering/Resolving]
  - Peripheral swelling [Recovering/Resolving]
  - Blood calcium decreased [Unknown]
